FAERS Safety Report 9538378 (Version 1)
Quarter: 2013Q3

REPORT INFORMATION
  Report Type: Report from Study
  Country: FR (occurrence: FR)
  Receive Date: 20130920
  Receipt Date: 20130920
  Transmission Date: 20140515
  Serious: Yes (Death)
  Sender: FDA-Public Use
  Company Number: FR-ROCHE-1278355

PATIENT
  Age: 28 Year
  Sex: Male

DRUGS (3)
  1. RITUXIMAB [Suspect]
     Indication: BURKITT^S LYMPHOMA
     Route: 065
  2. ETOPOSIDE [Suspect]
     Indication: BURKITT^S LYMPHOMA
     Route: 042
     Dates: start: 20050325, end: 20050328
  3. CYTARABINE [Suspect]
     Indication: BURKITT^S LYMPHOMA
     Route: 042
     Dates: start: 20050324, end: 20050328

REACTIONS (1)
  - Febrile bone marrow aplasia [Fatal]
